FAERS Safety Report 24795572 (Version 1)
Quarter: 2024Q4

REPORT INFORMATION
  Report Type: Spontaneous
  Country: ES (occurrence: ES)
  Receive Date: 20241231
  Receipt Date: 20241231
  Transmission Date: 20250114
  Serious: Yes (Other)
  Sender: AUROBINDO
  Company Number: ES-ROCHE-10000143672

PATIENT
  Age: 5 Year
  Sex: Male
  Weight: 88 kg

DRUGS (9)
  1. CELECOXIB [Suspect]
     Active Substance: CELECOXIB
     Indication: Respiratory papilloma
     Dosage: 200 MILLIGRAM, ONCE A DAY(DOSE REDUCED AND WITHDRAWN 5 WEEKS AFTER INITIATION OF THE REDUCED DOSE.)
     Route: 048
  2. CELECOXIB [Suspect]
     Active Substance: CELECOXIB
     Dosage: 200 MILLIGRAM
     Route: 048
  3. CELECOXIB [Suspect]
     Active Substance: CELECOXIB
     Dosage: 200 MILLIGRAM, TWO TIMES A DAY
     Route: 048
  4. BEVACIZUMAB [Suspect]
     Active Substance: BEVACIZUMAB
     Indication: Respiratory papilloma
     Dosage: 150 MILLIGRAM, DAILY
     Route: 042
  5. BEVACIZUMAB [Suspect]
     Active Substance: BEVACIZUMAB
     Dosage: 200 MILLIGRAM, TWO TIMES A DAY
     Route: 026
  6. BEVACIZUMAB [Suspect]
     Active Substance: BEVACIZUMAB
     Dosage: UNK (1 MONTH)
     Route: 042
  7. BEVACIZUMAB [Suspect]
     Active Substance: BEVACIZUMAB
     Dosage: UNK
     Route: 026
  8. ERLOTINIB [Suspect]
     Active Substance: ERLOTINIB
     Indication: Respiratory papilloma
     Dosage: 150 MILLIGRAM, ONCE A DAY
     Route: 048
  9. TACROLIMUS [Concomitant]
     Active Substance: TACROLIMUS
     Indication: Immunosuppressant drug therapy
     Dosage: UNK (LOWER-THAN-USUAL DOSE)
     Route: 065

REACTIONS (8)
  - Respiratory failure [Unknown]
  - Renal impairment [Recovered/Resolved]
  - Respiratory papilloma [Unknown]
  - Postoperative thoracic procedure complication [Unknown]
  - Proteinuria [Unknown]
  - Laryngeal papilloma [Recovered/Resolved]
  - Disease recurrence [Recovered/Resolved]
  - Off label use [Unknown]
